FAERS Safety Report 25125754 (Version 1)
Quarter: 2025Q1

REPORT INFORMATION
  Report Type: Spontaneous
  Country: GB (occurrence: GB)
  Receive Date: 20250326
  Receipt Date: 20250326
  Transmission Date: 20250409
  Serious: Yes (Other)
  Sender: BRISTOL-MYERS SQUIBB COMPANY
  Company Number: None

PATIENT
  Age: 37 Year
  Sex: Male
  Weight: 136 kg

DRUGS (2)
  1. MAVACAMTEN [Suspect]
     Active Substance: MAVACAMTEN
     Indication: Hypertrophic cardiomyopathy
  2. MAVACAMTEN [Suspect]
     Active Substance: MAVACAMTEN
     Dosage: 10MG OD

REACTIONS (2)
  - Anxiety [Recovered/Resolved with Sequelae]
  - Paranoia [Not Recovered/Not Resolved]

NARRATIVE: CASE EVENT DATE: 20250213
